FAERS Safety Report 14005025 (Version 2)
Quarter: 2017Q4

REPORT INFORMATION
  Report Type: Report from Study
  Country: BR (occurrence: BR)
  Receive Date: 20170922
  Receipt Date: 20171006
  Transmission Date: 20180321
  Serious: No
  Sender: FDA-Public Use
  Company Number: PHHY2017BR137784

PATIENT
  Sex: Male
  Weight: 72 kg

DRUGS (6)
  1. METHOTREXATE. [Concomitant]
     Active Substance: METHOTREXATE
     Indication: PRODUCT USED FOR UNKNOWN INDICATION
     Dosage: 2 MG, UNK
     Route: 048
     Dates: start: 2002
  2. COSENTYX [Suspect]
     Active Substance: SECUKINUMAB
     Indication: ANKYLOSING SPONDYLITIS
  3. COSENTYX [Suspect]
     Active Substance: SECUKINUMAB
     Indication: PSORIATIC ARTHROPATHY
     Dosage: 300 MG, QMO
     Route: 058
     Dates: start: 201606
  4. METHOTREXATE. [Concomitant]
     Active Substance: METHOTREXATE
     Dosage: 5 MG, UNK
     Route: 048
     Dates: start: 2002
  5. OLCADIL [Concomitant]
     Active Substance: CLOXAZOLAM
     Indication: PRODUCT USED FOR UNKNOWN INDICATION
     Dosage: 3 DF, QD
     Route: 048
  6. FORTEO [Concomitant]
     Active Substance: TERIPARATIDE
     Indication: BONE DEVELOPMENT ABNORMAL
     Dosage: UNK UNK, QD
     Route: 058

REACTIONS (4)
  - Malaise [Unknown]
  - Therapeutic response decreased [Unknown]
  - Arthralgia [Unknown]
  - Tooth disorder [Not Recovered/Not Resolved]
